FAERS Safety Report 12388538 (Version 1)
Quarter: 2016Q2

REPORT INFORMATION
  Report Type: Spontaneous
  Country: US (occurrence: None)
  Receive Date: 20160519
  Receipt Date: 20160519
  Transmission Date: 20160815
  Serious: No
  Sender: FDA-Public Use
  Company Number: None

PATIENT
  Age: 55 Year
  Sex: Female

DRUGS (19)
  1. ZOLPIDEM [Concomitant]
     Active Substance: ZOLPIDEM\ZOLPIDEM TARTRATE
  2. OMEPRAZOLE. [Concomitant]
     Active Substance: OMEPRAZOLE
  3. LANTUS SOLOSTAR [Concomitant]
     Active Substance: INSULIN GLARGINE
  4. FENTANYL. [Concomitant]
     Active Substance: FENTANYL
  5. CALCIUM [Concomitant]
     Active Substance: CALCIUM
  6. TOPIRAMATE. [Concomitant]
     Active Substance: TOPIRAMATE
  7. RANITIDINE. [Concomitant]
     Active Substance: RANITIDINE
  8. SUTENT [Suspect]
     Active Substance: SUNITINIB MALATE
     Indication: PANCREATIC CARCINOMA
     Route: 048
     Dates: start: 201505, end: 20160517
  9. CREON [Concomitant]
     Active Substance: PANCRELIPASE AMYLASE\PANCRELIPASE LIPASE\PANCRELIPASE PROTEASE
  10. CYCLOBENZAPRINE [Concomitant]
     Active Substance: CYCLOBENZAPRINE
  11. PROMETHAZINE [Concomitant]
     Active Substance: PROMETHAZINE\PROMETHAZINE HYDROCHLORIDE
  12. LEVOTHYROXIN [Concomitant]
     Active Substance: LEVOTHYROXINE
  13. OXYCODONE [Concomitant]
     Active Substance: OXYCODONE
  14. CHANTIX [Concomitant]
     Active Substance: VARENICLINE TARTRATE
  15. AMITRIPTYLIN [Concomitant]
     Active Substance: AMITRIPTYLINE
  16. XIFAXAN [Concomitant]
     Active Substance: RIFAXIMIN
  17. SPIRONOLACTONE. [Concomitant]
     Active Substance: SPIRONOLACTONE
  18. TOPAMAX [Concomitant]
     Active Substance: TOPIRAMATE
  19. KLOR-CON [Concomitant]
     Active Substance: POTASSIUM CHLORIDE

REACTIONS (1)
  - Platelet count decreased [None]

NARRATIVE: CASE EVENT DATE: 201603
